FAERS Safety Report 14339653 (Version 1)
Quarter: 2017Q4

REPORT INFORMATION
  Report Type: Spontaneous
  Country: FR (occurrence: FR)
  Receive Date: 20171230
  Receipt Date: 20171230
  Transmission Date: 20180321
  Serious: Yes (Other)
  Sender: FDA-Public Use
  Company Number: FR-FRESENIUS KABI-FK201711253

PATIENT
  Age: 8 Year
  Sex: Male

DRUGS (5)
  1. ETOPOSIDE (MANUFACTURER UNKNOWN) [Suspect]
     Active Substance: ETOPOSIDE
     Indication: ATYPICAL TERATOID/RHABDOID TUMOUR OF CNS
     Route: 065
  2. LIPOSOMAL CYTARABINE [Suspect]
     Active Substance: CYTARABINE
     Indication: ATYPICAL TERATOID/RHABDOID TUMOUR OF CNS
     Route: 037
  3. CELECOXIB. [Suspect]
     Active Substance: CELECOXIB
     Indication: ATYPICAL TERATOID/RHABDOID TUMOUR OF CNS
  4. CYCLOPHOSPHAMIDE. [Suspect]
     Active Substance: CYCLOPHOSPHAMIDE
     Indication: ATYPICAL TERATOID/RHABDOID TUMOUR OF CNS
  5. CELECOXIB. [Suspect]
     Active Substance: CELECOXIB
     Indication: ATYPICAL TERATOID/RHABDOID TUMOUR OF CNS

REACTIONS (3)
  - Influenza [Recovered/Resolved]
  - Neutropenia [Recovered/Resolved]
  - Asthenia [Recovered/Resolved]
